FAERS Safety Report 25021571 (Version 1)
Quarter: 2025Q1

REPORT INFORMATION
  Report Type: Spontaneous
  Country: US (occurrence: US)
  Receive Date: 20250228
  Receipt Date: 20250228
  Transmission Date: 20250408
  Serious: No
  Sender: Haleon PLC
  Company Number: US-002147023-NVSC2024US084361

PATIENT
  Age: 41 Year
  Sex: Male

DRUGS (1)
  1. DICLOFENAC [Suspect]
     Active Substance: DICLOFENAC
     Indication: Product used for unknown indication

REACTIONS (3)
  - Skin infection [Unknown]
  - Arthralgia [Unknown]
  - Treatment failure [Unknown]
